FAERS Safety Report 16739187 (Version 1)
Quarter: 2019Q3

REPORT INFORMATION
  Report Type: Spontaneous
  Country: US (occurrence: US)
  Receive Date: 20190826
  Receipt Date: 20190826
  Transmission Date: 20191005
  Serious: No
  Sender: FDA-Public Use
  Company Number: US-OREXO US, INC.-ORE201902-000036

PATIENT
  Age: 61 Year
  Sex: Female

DRUGS (1)
  1. ZUBSOLV [Suspect]
     Active Substance: BUPRENORPHINE HYDROCHLORIDE\NALOXONE HYDROCHLORIDE
     Dosage: HALF TABLET TWICE A DAY
     Route: 060
     Dates: start: 20190205

REACTIONS (3)
  - Oral pain [Unknown]
  - Oral mucosal erythema [Unknown]
  - Tongue erythema [Unknown]
